APPROVED DRUG PRODUCT: DARUNAVIR
Active Ingredient: DARUNAVIR
Strength: 600MG
Dosage Form/Route: TABLET;ORAL
Application: A216168 | Product #001 | TE Code: AB
Applicant: ANNORA PHARMA PRIVATE LTD
Approved: Jan 21, 2025 | RLD: No | RS: No | Type: RX